FAERS Safety Report 4741396-0 (Version None)
Quarter: 2005Q3

REPORT INFORMATION
  Report Type: 
  Country: None (occurrence: None)
  Receive Date: 20050808
  Receipt Date: 20050727
  Transmission Date: 20060218
  Serious: Yes (Hospitalization)
  Sender: FDA-Public Use
  Company Number: 2005106768

PATIENT
  Age: 20 Year
  Sex: Female
  Weight: 45.3597 kg

DRUGS (1)
  1. BENADRYL [Suspect]
     Indication: INSOMNIA
     Dosage: APPROX. 6 TABS ONCE, ORAL
     Route: 048
     Dates: start: 20050726, end: 20050726

REACTIONS (1)
  - ABNORMAL BEHAVIOUR [None]
